FAERS Safety Report 16374043 (Version 1)
Quarter: 2019Q2

REPORT INFORMATION
  Report Type: Spontaneous
  Country: PL (occurrence: PL)
  Receive Date: 20190530
  Receipt Date: 20190530
  Transmission Date: 20190711
  Serious: Yes (Hospitalization)
  Sender: FDA-Public Use
  Company Number: PL-MYLANLABS-2019M1049491

PATIENT
  Sex: Male

DRUGS (3)
  1. CLINDAMYCIN PHOSPHATE. [Suspect]
     Active Substance: CLINDAMYCIN PHOSPHATE
     Indication: ERYSIPELAS
     Dosage: 1800 MILLIGRAM, QD (1800 MG, DAILY IN 3 DOSES)
     Route: 042
  2. VANCOMYCIN [Suspect]
     Active Substance: VANCOMYCIN
     Indication: ERYSIPELAS
     Dosage: 2 GRAM, QD (2 G, DAILY IN 2 DIVIDED DOSES)
  3. PENICILLIN CRYSTALLINE [Suspect]
     Active Substance: PENICILLIN G SODIUM
     Indication: ERYSIPELAS
     Dosage: UNK UNK, QD (24 MILLION U/DAILY IN 4 DOSES)

REACTIONS (1)
  - Drug ineffective [Unknown]
